FAERS Safety Report 8435889-2 (Version None)
Quarter: 2012Q2

REPORT INFORMATION
  Report Type: 
  Country: None (occurrence: None)
  Receive Date: 20120614
  Receipt Date: 20120612
  Transmission Date: 20120825
  Serious: Yes (Hospitalization, Disabling, Other)
  Sender: FDA-Public Use
  Company Number: US-PFIZER INC-2012135068

PATIENT
  Sex: Female
  Weight: 88 kg

DRUGS (8)
  1. ZANTAC [Concomitant]
     Indication: GASTROINTESTINAL ULCER
     Dosage: 150 MG, 2X/DAY
     Dates: start: 20090101
  2. HYDROCODONE [Concomitant]
     Indication: MIGRAINE
     Dosage: 5/325 MG EVERY 6 HOURS, AS NEEDED
  3. PLAVIX [Concomitant]
     Indication: FACTOR V DEFICIENCY
     Dosage: 75 MG, DAILY
  4. COUMADIN [Suspect]
     Indication: FACTOR V DEFICIENCY
     Dosage: UNK
  5. ASPIRIN [Concomitant]
     Indication: FACTOR V DEFICIENCY
     Dosage: 81 MG, 2X/DAY
  6. TOPAMAX [Concomitant]
     Indication: MIGRAINE PROPHYLAXIS
     Dosage: 200 MG, DAILY
  7. PROTONIX [Suspect]
     Indication: GASTROINTESTINAL ULCER
     Dosage: 40 MG, DAILY
     Dates: start: 20110101
  8. PHENERGAN [Concomitant]
     Indication: NAUSEA
     Dosage: 25 MG EVERY 6 HOURS, AS NEEDED

REACTIONS (3)
  - DRUG LEVEL CHANGED [None]
  - MYOCARDIAL INFARCTION [None]
  - PROCEDURAL HAEMORRHAGE [None]
